FAERS Safety Report 12181355 (Version 2)
Quarter: 2016Q2

REPORT INFORMATION
  Report Type: Spontaneous
  Country: US (occurrence: US)
  Receive Date: 20160315
  Receipt Date: 20160617
  Transmission Date: 20160815
  Serious: Yes (Other)
  Sender: FDA-Public Use
  Company Number: US-ALLERGAN-1625248US

PATIENT
  Age: 57 Year
  Sex: Female

DRUGS (1)
  1. VIBERZI [Suspect]
     Active Substance: ELUXADOLINE
     Indication: IRRITABLE BOWEL SYNDROME
     Dosage: 75 MG, UNK
     Route: 048

REACTIONS (1)
  - Sphincter of Oddi dysfunction [Recovered/Resolved]

NARRATIVE: CASE EVENT DATE: 20160203
